FAERS Safety Report 11084130 (Version 2)
Quarter: 2015Q2

REPORT INFORMATION
  Report Type: Spontaneous
  Country: US (occurrence: US)
  Receive Date: 20150502
  Receipt Date: 20150526
  Transmission Date: 20150821
  Serious: No
  Sender: FDA-Public Use
  Company Number: US-JNJFOC-20130507297

PATIENT
  Age: 27 Year
  Sex: Female
  Weight: 61.24 kg

DRUGS (1)
  1. ORTHO EVRA [Suspect]
     Active Substance: ETHINYL ESTRADIOL\NORELGESTROMIN
     Indication: CONTRACEPTION
     Route: 062
     Dates: start: 2005, end: 20130421

REACTIONS (3)
  - Vaginal discharge [Unknown]
  - Vaginal haemorrhage [Unknown]
  - Ovulation pain [Unknown]

NARRATIVE: CASE EVENT DATE: 20130506
